FAERS Safety Report 12287504 (Version 2)
Quarter: 2016Q2

REPORT INFORMATION
  Report Type: Spontaneous
  Country: None (occurrence: US)
  Receive Date: 20160420
  Receipt Date: 20160601
  Transmission Date: 20160815
  Serious: No
  Sender: FDA-Public Use
  Company Number: US-MERZ NORTH AMERICA, INC.-16MRZ-00233

PATIENT
  Sex: Female
  Weight: 73.09 kg

DRUGS (1)
  1. XEOMIN [Suspect]
     Active Substance: INCOBOTULINUMTOXINA
     Indication: HEADACHE
     Dosage: 300 UNITS INJECTED IN HEAD AND NECK
     Dates: start: 20160201

REACTIONS (3)
  - Burning sensation [None]
  - Pain [None]
  - Myalgia [None]
